FAERS Safety Report 15213743 (Version 1)
Quarter: 2018Q3

REPORT INFORMATION
  Report Type: Spontaneous
  Country: US (occurrence: US)
  Receive Date: 20180730
  Receipt Date: 20180730
  Transmission Date: 20181010
  Serious: Yes (Other)
  Sender: FDA-Public Use
  Company Number: US-SA-2017SA259922

PATIENT
  Age: 40 Year
  Sex: Female
  Weight: 79 kg

DRUGS (5)
  1. BENICAR [Concomitant]
     Active Substance: OLMESARTAN MEDOXOMIL
  2. ABRAXANE [Concomitant]
     Active Substance: PACLITAXEL
  3. PARAPLATIN [Concomitant]
     Active Substance: CARBOPLATIN
  4. DOCETAXEL. [Suspect]
     Active Substance: DOCETAXEL
     Dosage: 120 MG,Q3W
     Route: 042
     Dates: start: 20141014, end: 20141014
  5. DOCETAXEL. [Suspect]
     Active Substance: DOCETAXEL
     Indication: BREAST CANCER
     Dosage: 120 MG,Q3W
     Route: 042
     Dates: start: 20140715, end: 20140715

REACTIONS (2)
  - Alopecia [Not Recovered/Not Resolved]
  - Psychological trauma [Unknown]

NARRATIVE: CASE EVENT DATE: 201407
